FAERS Safety Report 16041586 (Version 1)
Quarter: 2019Q1

REPORT INFORMATION
  Report Type: Spontaneous
  Country: US (occurrence: US)
  Receive Date: 20190306
  Receipt Date: 20190306
  Transmission Date: 20190418
  Serious: No
  Sender: FDA-Public Use
  Company Number: US-PFIZER INC-2018114312

PATIENT
  Age: 85 Year
  Sex: Female
  Weight: 60.78 kg

DRUGS (1)
  1. IBRANCE [Suspect]
     Active Substance: PALBOCICLIB
     Indication: BREAST CANCER
     Dosage: 125 MG, 1X/DAY, (ONCE A DAY FOR 21 DAYS)
     Route: 048
     Dates: start: 2018

REACTIONS (1)
  - Musculoskeletal discomfort [Unknown]

NARRATIVE: CASE EVENT DATE: 2018
